FAERS Safety Report 10431457 (Version 1)
Quarter: 2014Q3

REPORT INFORMATION
  Report Type: Spontaneous
  Country: BE (occurrence: BE)
  Receive Date: 20140904
  Receipt Date: 20140904
  Transmission Date: 20150326
  Serious: Yes (Other)
  Sender: FDA-Public Use
  Company Number: BE-GLAXOSMITHKLINE-B1029993A

PATIENT
  Age: 24 Year
  Sex: Female
  Weight: 83 kg

DRUGS (6)
  1. LAMICTAL [Concomitant]
     Active Substance: LAMOTRIGINE
  2. RIVOTRIL [Concomitant]
     Active Substance: CLONAZEPAM
  3. ETHOSUXIMIDE. [Concomitant]
     Active Substance: ETHOSUXIMIDE
  4. NEOTIGASON [Suspect]
     Active Substance: ACITRETIN
     Indication: ACNE
     Route: 065
     Dates: start: 20140628
  5. ORGAMETRIL [Concomitant]
     Active Substance: LYNESTRENOL
  6. DEPAKINE [Concomitant]
     Active Substance: VALPROATE SODIUM

REACTIONS (1)
  - Vaginal haemorrhage [Unknown]
